FAERS Safety Report 6191283-9 (Version None)
Quarter: 2009Q2

REPORT INFORMATION
  Report Type: 
  Country: None (occurrence: None)
  Receive Date: 20090513
  Receipt Date: 20090513
  Transmission Date: 20091009
  Serious: Yes (Disabling)
  Sender: FDA-Public Use
  Company Number: None

PATIENT
  Sex: Male
  Weight: 88.4514 kg

DRUGS (2)
  1. SPIRIVA [Suspect]
     Indication: ASBESTOSIS
     Dosage: ONE PUFF 1 DAILY MOUTH
     Route: 048
     Dates: start: 20080601, end: 20090320
  2. SPIRIVA [Suspect]
     Indication: CHRONIC OBSTRUCTIVE PULMONARY DISEASE
     Dosage: ONE PUFF 1 DAILY MOUTH
     Route: 048
     Dates: start: 20080601, end: 20090320

REACTIONS (2)
  - BLINDNESS TRANSIENT [None]
  - VISUAL IMPAIRMENT [None]
